FAERS Safety Report 11052591 (Version 1)
Quarter: 2015Q2

REPORT INFORMATION
  Report Type: Spontaneous
  Country: IT (occurrence: IT)
  Receive Date: 20150421
  Receipt Date: 20150421
  Transmission Date: 20150821
  Serious: Yes (Other)
  Sender: FDA-Public Use
  Company Number: IT-BAYER-2015-133896

PATIENT
  Age: 27 Year
  Sex: Female

DRUGS (2)
  1. ASPIRINA [Suspect]
     Active Substance: ASPIRIN
     Dosage: 8 DF, UNK
     Route: 048
     Dates: start: 20150410, end: 20150410
  2. GINODEN [Suspect]
     Active Substance: ETHINYL ESTRADIOL\GESTODENE
     Dosage: 8 DF, UNK
     Route: 048
     Dates: start: 20150410, end: 20150410

REACTIONS (2)
  - Abdominal pain upper [Recovering/Resolving]
  - Drug abuse [Recovering/Resolving]

NARRATIVE: CASE EVENT DATE: 20150410
